FAERS Safety Report 5303289-X (Version None)
Quarter: 2007Q2

REPORT INFORMATION
  Report Type: 
  Country: None (occurrence: None)
  Receive Date: 20070420
  Receipt Date: 20070412
  Transmission Date: 20071010
  Serious: Yes (Hospitalization)
  Sender: FDA-Public Use
  Company Number: FR-GLAXOSMITHKLINE-B0453335A

PATIENT
  Age: 84 Year
  Sex: Female

DRUGS (2)
  1. LAMICTAL [Suspect]
     Indication: EPILEPSY
     Route: 048
     Dates: start: 20060706, end: 20060906
  2. SEROPLEX [Suspect]
     Dosage: 10MG PER DAY
     Route: 048
     Dates: start: 20060501, end: 20060830

REACTIONS (4)
  - COORDINATION ABNORMAL [None]
  - DYSKINESIA [None]
  - FALL [None]
  - MUSCULOSKELETAL DISORDER [None]
